FAERS Safety Report 6901082-5 (Version None)
Quarter: 2010Q3

REPORT INFORMATION
  Report Type: 
  Country: None (occurrence: None)
  Receive Date: 20100803
  Receipt Date: 20100727
  Transmission Date: 20110219
  Serious: Yes (Other)
  Sender: FDA-Public Use
  Company Number: GR-ABBOTT-10P-066-0651158-00

PATIENT
  Age: 59 Year
  Sex: Female

DRUGS (3)
  1. VALPROATE SODIUM [Suspect]
     Indication: BIPOLAR DISORDER
  2. RISPERIDONE [Concomitant]
     Indication: PRODUCT USED FOR UNKNOWN INDICATION
  3. VIPERIDENE [Concomitant]
     Indication: PRODUCT USED FOR UNKNOWN INDICATION

REACTIONS (1)
  - PLEURISY [None]
